FAERS Safety Report 7148690-7 (Version None)
Quarter: 2010Q4

REPORT INFORMATION
  Report Type: 
  Country: None (occurrence: None)
  Receive Date: 20101209
  Receipt Date: 20101004
  Transmission Date: 20110411
  Serious: No
  Sender: FDA-Public Use
  Company Number: US-BAYER-201022178BCC

PATIENT
  Sex: Female
  Weight: 59.091 kg

DRUGS (1)
  1. ALEVE (CAPLET) [Suspect]
     Dosage: 440 MG, BID
     Route: 048
     Dates: start: 20101001, end: 20101002

REACTIONS (2)
  - ABDOMINAL DISCOMFORT [None]
  - DIARRHOEA [None]
